FAERS Safety Report 15106216 (Version 5)
Quarter: 2018Q3

REPORT INFORMATION
  Report Type: Spontaneous
  Country: JP (occurrence: JP)
  Receive Date: 20180704
  Receipt Date: 20180817
  Transmission Date: 20181010
  Serious: Yes (Death, Other)
  Sender: FDA-Public Use
  Company Number: JP-HORIZON-BUP-0051-2017

PATIENT
  Age: 53 Year
  Sex: Female

DRUGS (3)
  1. PIARLE [Concomitant]
     Indication: ASPARTATE-GLUTAMATE-TRANSPORTER DEFICIENCY
     Dosage: 10 ML TID FROM 03?AUG?2017 TO 25?OCT?2017 AND 15 ML TID SINCE 26?OCT?2017
     Route: 048
     Dates: start: 20170803
  2. BUPHENYL [Suspect]
     Active Substance: SODIUM PHENYLBUTYRATE
     Indication: ASPARTATE-GLUTAMATE-TRANSPORTER DEFICIENCY
     Dosage: SEE NARRATIVE
     Route: 048
     Dates: start: 20170622
  3. ARGI?U [Concomitant]
     Indication: ASPARTATE-GLUTAMATE-TRANSPORTER DEFICIENCY
     Dosage: 2 GTID TO 26?APR?2017, FROM 17?APR?2017 TO 10?MAY?2017 3 G TID, FROM 11?MAY?2017 6.67 G TID TO UNK
     Route: 048
     Dates: start: 20170413

REACTIONS (6)
  - Oedema peripheral [Recovered/Resolved]
  - Hyperkalaemia [Recovered/Resolved]
  - Off label use [Unknown]
  - Pulmonary congestion [Recovered/Resolved]
  - Condition aggravated [Fatal]
  - Hyperammonaemia [Fatal]

NARRATIVE: CASE EVENT DATE: 20170714
